FAERS Safety Report 6200191-6 (Version None)
Quarter: 2009Q2

REPORT INFORMATION
  Report Type: 
  Country: None (occurrence: None)
  Receive Date: 20090522
  Receipt Date: 20090513
  Transmission Date: 20091009
  Serious: Yes (Other)
  Sender: FDA-Public Use
  Company Number: US-PFIZER INC-2009213914

PATIENT
  Sex: Male
  Weight: 72.574 kg

DRUGS (4)
  1. LIPITOR [Suspect]
     Indication: BLOOD TRIGLYCERIDES INCREASED
     Dosage: UNK
     Dates: start: 20080101, end: 20080101
  2. LIPITOR [Suspect]
     Dosage: 40 MG, 1X/DAY
     Dates: start: 20090301
  3. MULTI-VITAMINS [Concomitant]
     Dosage: UNK
  4. ACCUTANE [Concomitant]
     Dosage: UNK

REACTIONS (6)
  - BLOOD TRIGLYCERIDES INCREASED [None]
  - DRY MOUTH [None]
  - DYSPHONIA [None]
  - OEDEMA MOUTH [None]
  - PHARYNGEAL OEDEMA [None]
  - RASH [None]
